FAERS Safety Report 13733965 (Version 4)
Quarter: 2017Q4

REPORT INFORMATION
  Report Type: Report from Study
  Country: JP (occurrence: JP)
  Receive Date: 20170708
  Receipt Date: 20171227
  Transmission Date: 20180320
  Serious: Yes (Hospitalization, Other)
  Sender: FDA-Public Use
  Company Number: JP-AMGEN-JPNCT2016184490

PATIENT
  Age: 67 Year
  Sex: Male
  Weight: 70.1 kg

DRUGS (23)
  1. OXALIPLATIN. [Suspect]
     Active Substance: OXALIPLATIN
     Dosage: 140 MG, Q2WEEKS
     Route: 041
     Dates: start: 20170202, end: 20170202
  2. FLUDROXYCORTIDE [Concomitant]
     Indication: DERMATITIS
     Dosage: 1 DF, UNK
     Route: 062
     Dates: start: 20161222
  3. PANITUMUMAB [Suspect]
     Active Substance: PANITUMUMAB
     Dosage: 3.6 MG/KG, Q2WK
     Route: 041
     Dates: start: 20170427, end: 20170525
  4. FLUOROURACIL. [Suspect]
     Active Substance: FLUOROURACIL
     Dosage: 700 MG, Q2WK
     Route: 040
     Dates: start: 20170629, end: 20170727
  5. PANITUMUMAB [Suspect]
     Active Substance: PANITUMUMAB
     Dosage: 430 MG, Q2WK
     Route: 041
     Dates: start: 20170202, end: 20170216
  6. FLUOROURACIL. [Suspect]
     Active Substance: FLUOROURACIL
     Dosage: 700 MG, Q2WK
     Route: 040
     Dates: start: 20170202, end: 20170525
  7. FLUOROURACIL. [Suspect]
     Active Substance: FLUOROURACIL
     Dosage: 4200 MG, Q2WEEKS
     Route: 041
     Dates: start: 20170202, end: 20170525
  8. URSODEOXYCHOLIC ACID [Concomitant]
     Active Substance: URSODIOL
     Indication: CHOLELITHIASIS
     Dosage: 300 MG, UNK
     Route: 048
     Dates: start: 20161208
  9. CALCIUM LEVOFOLINATE [Suspect]
     Active Substance: LEVOLEUCOVORIN CALCIUM
     Dosage: 350 MG, Q2WEEKS
     Route: 041
     Dates: start: 20170202, end: 20170525
  10. FLUOROURACIL. [Suspect]
     Active Substance: FLUOROURACIL
     Indication: RECTAL CANCER STAGE IV
     Dosage: 700 MG, Q2WEEKS
     Route: 040
     Dates: start: 20161025, end: 20170105
  11. PANITUMUMAB [Suspect]
     Active Substance: PANITUMUMAB
     Indication: RECTAL CANCER STAGE IV
     Dosage: 430 MG, Q2WK
     Route: 041
     Dates: start: 20161025, end: 20170105
  12. FLUOROURACIL. [Suspect]
     Active Substance: FLUOROURACIL
     Dosage: 4200 MG, Q2WEEKS
     Route: 041
     Dates: start: 20161025, end: 20170105
  13. DIFLUPREDNATE [Concomitant]
     Active Substance: DIFLUPREDNATE
     Indication: ECZEMA
     Dosage: UNK UNK, BID
     Route: 062
     Dates: start: 20161025
  14. PANITUMUMAB [Suspect]
     Active Substance: PANITUMUMAB
     Dosage: 320 MG, Q2WK
     Route: 041
     Dates: start: 20170316, end: 20170316
  15. CALCIUM LEVOFOLINATE [Suspect]
     Active Substance: LEVOLEUCOVORIN CALCIUM
     Indication: RECTAL CANCER STAGE IV
     Dosage: 350 MG, Q2WEEKS
     Route: 041
     Dates: start: 20161025, end: 20170105
  16. CALCIUM LEVOFOLINATE [Suspect]
     Active Substance: LEVOLEUCOVORIN CALCIUM
     Dosage: 350 MG, Q2WEEKS
     Route: 041
     Dates: start: 20170629, end: 20170727
  17. FLUOROURACIL. [Suspect]
     Active Substance: FLUOROURACIL
     Dosage: 4200 MG, Q2WEEKS
     Route: 041
     Dates: start: 20170629, end: 20170727
  18. POTASSIUM CHLORIDE. [Concomitant]
     Active Substance: POTASSIUM CHLORIDE
     Indication: DIARRHOEA
     Dosage: 1200 MG, UNK
     Route: 048
     Dates: start: 20170525
  19. AMLODIPINE BESILATE [Concomitant]
     Active Substance: AMLODIPINE BESYLATE
     Indication: HYPERTENSION
     Dosage: 5 MG, UNK
     Route: 048
     Dates: start: 20161028
  20. MINOCYCLINE HYDROCHLORIDE. [Concomitant]
     Active Substance: MINOCYCLINE HYDROCHLORIDE
     Indication: INFECTION
     Dosage: UNK UNK, QD
     Route: 048
     Dates: start: 20161208
  21. PANITUMUMAB [Suspect]
     Active Substance: PANITUMUMAB
     Dosage: 3.6 MG/KG, Q2WK
     Route: 041
     Dates: start: 20170629, end: 20170629
  22. PANITUMUMAB [Suspect]
     Active Substance: PANITUMUMAB
     Dosage: 3.6 MG/KG, Q2WK
     Route: 041
     Dates: start: 20170727, end: 20170727
  23. OXALIPLATIN. [Suspect]
     Active Substance: OXALIPLATIN
     Indication: RECTAL CANCER STAGE IV
     Dosage: 140 MG, Q2WEEKS
     Route: 041
     Dates: start: 20161025, end: 20170105

REACTIONS (15)
  - Peripheral sensory neuropathy [Recovered/Resolved]
  - Pancreatic enzymes increased [Recovered/Resolved]
  - Peripheral sensory neuropathy [Not Recovered/Not Resolved]
  - Herpes zoster [Recovering/Resolving]
  - Hypokalaemia [Recovered/Resolved]
  - Angular cheilitis [Recovered/Resolved]
  - Stomatitis [Recovered/Resolved]
  - Paronychia [Recovered/Resolved]
  - Dermatitis acneiform [Not Recovered/Not Resolved]
  - Malaise [Recovered/Resolved]
  - Dry skin [Recovered/Resolved]
  - Fatigue [Recovered/Resolved]
  - Skin fissures [Recovered/Resolved]
  - Pruritus [Recovered/Resolved]
  - Decreased appetite [Recovered/Resolved]

NARRATIVE: CASE EVENT DATE: 20170608
